FAERS Safety Report 5805007-5 (Version None)
Quarter: 2008Q3

REPORT INFORMATION
  Report Type: 
  Country: None (occurrence: None)
  Receive Date: 20080709
  Receipt Date: 20080703
  Transmission Date: 20090109
  Serious: Yes (Hospitalization)
  Sender: FDA-Public Use
  Company Number: US-BOEHRINGER INGELHEIM GMBH, GERMANY-2007-BP-18362BP

PATIENT
  Age: 49 Year
  Sex: Female

DRUGS (8)
  1. MOBIC [Suspect]
     Indication: ARTHRALGIA
     Route: 048
     Dates: start: 20070111, end: 20070116
  2. MOBIC [Suspect]
     Route: 048
     Dates: start: 20070117, end: 20070601
  3. UNKNOWN STUDY DRUG [Suspect]
     Indication: ARTHRALGIA
     Dates: start: 20061227, end: 20070709
  4. GLUCOSAMINE AND CHONDROITIN [Concomitant]
  5. MULTI-VITAMIN [Concomitant]
  6. DIPHENHYDRAMINE HCL [Concomitant]
  7. OMEGA 3 [Concomitant]
  8. ACETAMINOPHEN [Concomitant]

REACTIONS (15)
  - ANORECTAL DISCOMFORT [None]
  - BLADDER PROLAPSE [None]
  - CYSTOCELE [None]
  - DIZZINESS [None]
  - DYSURIA [None]
  - ENTEROCELE [None]
  - HAEMATOCRIT DECREASED [None]
  - HAEMORRHAGE [None]
  - HEADACHE [None]
  - PELVIC PROLAPSE [None]
  - POST PROCEDURAL HAEMORRHAGE [None]
  - RECTOCELE [None]
  - URETHRAL DISORDER [None]
  - VAGINAL PROLAPSE [None]
  - VULVAL HAEMATOMA [None]
